FAERS Safety Report 21574637 (Version 1)
Quarter: 2022Q4

REPORT INFORMATION
  Report Type: Spontaneous
  Country: US (occurrence: US)
  Receive Date: 20221109
  Receipt Date: 20221109
  Transmission Date: 20230113
  Serious: Yes (Other)
  Sender: FDA-Public Use
  Company Number: US-JNJFOC-20221105665

PATIENT
  Sex: Female

DRUGS (2)
  1. UPTRAVI [Suspect]
     Active Substance: SELEXIPAG
     Indication: Product used for unknown indication
     Route: 048
  2. JAKAFI [Concomitant]
     Active Substance: RUXOLITINIB
     Indication: Polycythaemia vera
     Route: 048
     Dates: start: 20220903

REACTIONS (8)
  - Pulmonary arterial hypertension [Unknown]
  - Headache [Unknown]
  - Flushing [Unknown]
  - Pain in jaw [Unknown]
  - Myalgia [Unknown]
  - Insomnia [Unknown]
  - Dizziness [Unknown]
  - Product dose omission issue [Unknown]
